FAERS Safety Report 21116443 (Version 1)
Quarter: 2022Q3

REPORT INFORMATION
  Report Type: Spontaneous
  Country: TR (occurrence: TR)
  Receive Date: 20220722
  Receipt Date: 20220722
  Transmission Date: 20221026
  Serious: Yes (Other)
  Sender: FDA-Public Use
  Company Number: TR-SUN PHARMACEUTICAL INDUSTRIES LTD-2020R1-236383

PATIENT
  Age: 52 Year
  Sex: Male

DRUGS (4)
  1. PRAMIPEXOLE [Suspect]
     Active Substance: PRAMIPEXOLE
     Indication: Parkinson^s disease
     Dosage: 1 MILLIGRAM, TID
     Route: 065
  2. RASAGILINE [Suspect]
     Active Substance: RASAGILINE
     Indication: Parkinson^s disease
     Dosage: 1 MILLIGRAM, QD
     Route: 065
  3. STALEVO [Suspect]
     Active Substance: CARBIDOPA\ENTACAPONE\LEVODOPA
     Indication: Parkinson^s disease
     Dosage: 100 MILLIGRAM, TID
     Route: 065
  4. PIRIBEDIL [Concomitant]
     Active Substance: PIRIBEDIL
     Indication: Parkinson^s disease
     Dosage: 50 MILLIGRAM, TID
     Route: 065

REACTIONS (2)
  - Impulse-control disorder [Recovered/Resolved]
  - Gambling disorder [Recovered/Resolved]
